FAERS Safety Report 8921291 (Version 2)
Quarter: 2013Q2

REPORT INFORMATION
  Report Type: Spontaneous
  Country: IT (occurrence: IT)
  Receive Date: 20121122
  Receipt Date: 20130522
  Transmission Date: 20140414
  Serious: Yes (Other)
  Sender: FDA-Public Use
  Company Number: IT-BRISTOL-MYERS SQUIBB COMPANY-17140658

PATIENT
  Age: 50 Year
  Sex: Female

DRUGS (7)
  1. ERBITUX SOLN FOR INF [Suspect]
     Indication: COLON CANCER
     Dosage: THERAPY RESUMED ON 31OCT2012
     Route: 042
     Dates: start: 20120926
  2. ONDANSETRON [Concomitant]
     Indication: COLON CANCER
     Route: 042
     Dates: start: 20120926, end: 20120926
  3. FLUOROURACIL [Concomitant]
     Indication: COLON CANCER
     Dosage: 26SEP2012-27SEP2012:942MG CYCILICAL(IV)
     Route: 040
     Dates: start: 20120926, end: 20120926
  4. CALCIUM LEVOFOLINATE [Concomitant]
     Indication: COLON CANCER
     Dosage: 7.5MG/ML
     Route: 042
     Dates: start: 20120926, end: 20120926
  5. SOLDESAM [Concomitant]
     Indication: COLON CANCER
     Dosage: 8MG/ML
     Route: 042
     Dates: start: 20120926, end: 20120926
  6. RANIDIL [Concomitant]
     Indication: COLON CANCER
     Dosage: 50MG/5ML
     Route: 042
     Dates: start: 20120926, end: 20120926
  7. IRINOTECAN HCL [Concomitant]
     Indication: COLON CANCER
     Dosage: 20MG/ML
     Route: 042
     Dates: start: 20120926, end: 20120926

REACTIONS (3)
  - Myalgia [Recovering/Resolving]
  - Diarrhoea [Recovering/Resolving]
  - Rash [Recovering/Resolving]
